FAERS Safety Report 18330764 (Version 4)
Quarter: 2020Q4

REPORT INFORMATION
  Report Type: Spontaneous
  Country: US (occurrence: US)
  Receive Date: 20200930
  Receipt Date: 20201218
  Transmission Date: 20210113
  Serious: Yes (Death, Hospitalization, Other)
  Sender: FDA-Public Use
  Company Number: US-GILEAD-2020-0496822

PATIENT
  Age: 70 Year
  Sex: Male

DRUGS (24)
  1. LISINOPRIL. [Concomitant]
     Active Substance: LISINOPRIL
  2. ONDANSETRON [Concomitant]
     Active Substance: ONDANSETRON
  3. ASPIRIN EC [Concomitant]
     Active Substance: ASPIRIN
  4. ZINC SULFATE. [Concomitant]
     Active Substance: ZINC SULFATE
  5. TOCILIZUMAB. [Concomitant]
     Active Substance: TOCILIZUMAB
     Dosage: 800 MG
     Route: 042
     Dates: start: 20200925
  6. ENOXAPARIN [Concomitant]
     Active Substance: ENOXAPARIN
  7. INSULIN LISPRO [Concomitant]
     Active Substance: INSULIN LISPRO
  8. METFORMIN [Concomitant]
     Active Substance: METFORMIN HYDROCHLORIDE
  9. REMDESIVIR. [Suspect]
     Active Substance: REMDESIVIR
     Indication: COVID-19
     Dosage: 200 MG, ONCE
     Route: 042
     Dates: start: 20200926, end: 20200926
  10. REMDESIVIR. [Suspect]
     Active Substance: REMDESIVIR
     Dosage: 100 MG, QD
     Route: 042
     Dates: start: 20200927
  11. ALBUTEROL INHALER [Concomitant]
     Active Substance: ALBUTEROL
  12. AMLODIPINE [Concomitant]
     Active Substance: AMLODIPINE BESYLATE
  13. MAGNESIUM OXIDE. [Concomitant]
     Active Substance: MAGNESIUM OXIDE
  14. METOPROLOL. [Concomitant]
     Active Substance: METOPROLOL
  15. HYDROCHLOROTHIAZIDE. [Concomitant]
     Active Substance: HYDROCHLOROTHIAZIDE
  16. SODIUM CHLORIDE 0.9% [Concomitant]
     Active Substance: SODIUM CHLORIDE
  17. ASCORBIC ACID. [Concomitant]
     Active Substance: ASCORBIC ACID
  18. ATORVASTATIN [Concomitant]
     Active Substance: ATORVASTATIN
  19. DEXAMETHASONE SODIUM [Concomitant]
     Active Substance: DEXAMETHASONE
  20. GABAPENTIN. [Concomitant]
     Active Substance: GABAPENTIN
  21. INSULIN GLARGINE [Concomitant]
     Active Substance: INSULIN GLARGINE
  22. INSULIN REGULAR [Concomitant]
     Active Substance: INSULIN NOS
     Dosage: SLIDING SCALE
  23. POTASSIUM CHLORIDE. [Concomitant]
     Active Substance: POTASSIUM CHLORIDE
  24. ZOSYN [Concomitant]
     Active Substance: PIPERACILLIN SODIUM\TAZOBACTAM SODIUM

REACTIONS (3)
  - Cardiac arrest [Fatal]
  - Large intestine perforation [Unknown]
  - Acute kidney injury [Unknown]

NARRATIVE: CASE EVENT DATE: 20200926
